FAERS Safety Report 12069775 (Version 1)
Quarter: 2016Q1

REPORT INFORMATION
  Report Type: Spontaneous
  Country: US (occurrence: US)
  Receive Date: 20160211
  Receipt Date: 20160211
  Transmission Date: 20160526
  Serious: Yes (Other)
  Sender: FDA-Public Use
  Company Number: US-CIPLA LTD.-2016US00925

PATIENT

DRUGS (2)
  1. RITONAVIR. [Suspect]
     Active Substance: RITONAVIR
     Dosage: 100 MG, ONCE DAILY IN THE MORNING OR IN THE EVENING
     Route: 065
  2. ATAZANAVIR [Suspect]
     Active Substance: ATAZANAVIR
     Dosage: 300 MG, ONCE DAILY IN THE MORNING OR IN THE EVENING
     Route: 065

REACTIONS (1)
  - Dermatitis contact [Unknown]
